FAERS Safety Report 14288592 (Version 2)
Quarter: 2017Q4

REPORT INFORMATION
  Report Type: Report from Study
  Country: CN (occurrence: CN)
  Receive Date: 20171214
  Receipt Date: 20171220
  Transmission Date: 20180321
  Serious: Yes (Hospitalization)
  Sender: FDA-Public Use
  Company Number: CN-BAYER-2017-208787

PATIENT
  Sex: Female

DRUGS (3)
  1. STIVARGA [Suspect]
     Active Substance: REGORAFENIB
     Indication: COLORECTAL CANCER
     Dosage: 120 MG, QD
     Route: 048
     Dates: start: 20171018, end: 20171104
  2. STIVARGA [Suspect]
     Active Substance: REGORAFENIB
     Indication: COLORECTAL CANCER
     Dosage: 120 MG, QD
     Route: 048
     Dates: start: 201711, end: 20171130
  3. NUTRIENTS NOS [Concomitant]
     Active Substance: UNSPECIFIED INGREDIENT
     Route: 041

REACTIONS (10)
  - Metastases to liver [Not Recovered/Not Resolved]
  - Metastases to central nervous system [None]
  - Blood glucose increased [Recovering/Resolving]
  - Gastrointestinal disorder [Unknown]
  - Decreased appetite [Unknown]
  - Mouth ulceration [Recovering/Resolving]
  - Coma hepatic [Recovering/Resolving]
  - Fatigue [Unknown]
  - Liver function test abnormal [None]
  - Off label use [None]

NARRATIVE: CASE EVENT DATE: 20171020
